FAERS Safety Report 7489885-2 (Version None)
Quarter: 2011Q2

REPORT INFORMATION
  Report Type: 
  Country: None (occurrence: None)
  Receive Date: 20110517
  Receipt Date: 20110517
  Transmission Date: 20111010
  Serious: Yes (Hospitalization)
  Sender: FDA-Public Use
  Company Number: None

PATIENT
  Age: 46 Year
  Sex: Male
  Weight: 87.8 kg

DRUGS (2)
  1. FACTOR IX NOS [Suspect]
     Indication: FACTOR IX DEFICIENCY
     Dosage: 3500-4500 UNITS IV BOLUS
     Route: 040
     Dates: start: 20110223, end: 20110225
  2. ANTIHEMOPHILIC FACTOR NOS [Suspect]
     Dosage: 3500 UNITS ONE TIME IV BOLUS
     Route: 040
     Dates: start: 20110222, end: 20110222

REACTIONS (4)
  - WRONG DRUG ADMINISTERED [None]
  - PRODUCT LABEL CONFUSION [None]
  - INCORRECT STORAGE OF DRUG [None]
  - INTERCEPTED DRUG DISPENSING ERROR [None]
